FAERS Safety Report 9380902 (Version 1)
Quarter: 2013Q3

REPORT INFORMATION
  Report Type: Spontaneous
  Country: CN (occurrence: CN)
  Receive Date: 20130703
  Receipt Date: 20130703
  Transmission Date: 20140515
  Serious: Yes (Hospitalization)
  Sender: FDA-Public Use
  Company Number: CN-JNJFOC-20130606280

PATIENT
  Age: 30 Year
  Sex: Female

DRUGS (1)
  1. TYLENOL COLD [Suspect]
     Indication: PYREXIA
     Route: 048
     Dates: start: 20120320, end: 20120323

REACTIONS (6)
  - Erythema [Recovering/Resolving]
  - Papule [Recovering/Resolving]
  - Skin plaque [Recovering/Resolving]
  - Pruritus [Recovering/Resolving]
  - Pharyngeal erythema [Recovering/Resolving]
  - Tonsillar disorder [Recovering/Resolving]
